FAERS Safety Report 9782176 (Version 3)
Quarter: 2014Q1

REPORT INFORMATION
  Report Type: Report from Study
  Country: DE (occurrence: DE)
  Receive Date: 20131226
  Receipt Date: 20140224
  Transmission Date: 20141002
  Serious: Yes (Hospitalization)
  Sender: FDA-Public Use
  Company Number: DE-ROCHE-1324440

PATIENT
  Age: 75 Year
  Sex: Female

DRUGS (10)
  1. TOCILIZUMAB [Suspect]
     Indication: RHEUMATOID ARTHRITIS
     Route: 065
     Dates: start: 201302, end: 20130222
  2. ADALIMUMAB [Suspect]
     Indication: RHEUMATOID ARTHRITIS
     Route: 065
     Dates: start: 20130313, end: 20130405
  3. METHOTREXATE [Concomitant]
     Indication: RHEUMATOID ARTHRITIS
     Route: 065
     Dates: start: 201303, end: 20130820
  4. AMLODIPIN [Concomitant]
     Route: 065
  5. BISOPROLOL [Concomitant]
     Route: 065
  6. PANTOZOL (GERMANY) [Concomitant]
     Route: 065
  7. ASS [Concomitant]
     Route: 065
     Dates: end: 201304
  8. XARELTO [Concomitant]
     Route: 065
  9. SIMVASTATIN [Concomitant]
     Route: 065
  10. RITUXIMAB [Concomitant]
     Route: 065
     Dates: start: 20130613, end: 20130613

REACTIONS (2)
  - Myocardial infarction [Recovered/Resolved]
  - Musculoskeletal stiffness [Unknown]
